FAERS Safety Report 9671198 (Version 4)
Quarter: 2014Q2

REPORT INFORMATION
  Report Type: Report from Study
  Country: DE (occurrence: DE)
  Receive Date: 20131106
  Receipt Date: 20140417
  Transmission Date: 20141212
  Serious: Yes (Hospitalization)
  Sender: FDA-Public Use
  Company Number: DE-ASTELLAS-2013US007745

PATIENT
  Age: 13 Year
  Sex: Female

DRUGS (3)
  1. TACROLIMUS [Suspect]
     Indication: DERMATITIS ATOPIC
     Dosage: 0.03 %, UNKNOWN FREQ.
     Route: 061
     Dates: start: 200801
  2. ADVANTAN [Concomitant]
     Indication: DERMATITIS ATOPIC
     Dosage: UNK UNK, UID/QD
     Route: 061
  3. LINOLA [Concomitant]
     Indication: DERMATITIS ATOPIC
     Route: 065

REACTIONS (4)
  - Investigation [Unknown]
  - Investigation [Unknown]
  - Oral surgery [Unknown]
  - Malocclusion [Unknown]
